FAERS Safety Report 7783429-3 (Version None)
Quarter: 2011Q3

REPORT INFORMATION
  Report Type: 
  Country: None (occurrence: None)
  Receive Date: 20110928
  Receipt Date: 20110928
  Transmission Date: 20111222
  Serious: Yes (Hospitalization)
  Sender: FDA-Public Use
  Company Number: None

PATIENT
  Age: 4 Year
  Sex: Male
  Weight: 19.05 kg

DRUGS (1)
  1. ZYPREXA [Suspect]
     Indication: SCHIZOPHRENIA
     Dosage: 1/4 OF A PILL
     Route: 048
     Dates: start: 20101020, end: 20101023

REACTIONS (8)
  - DYSKINESIA [None]
  - RASH [None]
  - DYSPNOEA [None]
  - ABASIA [None]
  - SPEECH DISORDER [None]
  - MENTAL STATUS CHANGES [None]
  - DYSPHAGIA [None]
  - PALPITATIONS [None]
